FAERS Safety Report 4403504-0 (Version None)
Quarter: 2004Q3

REPORT INFORMATION
  Report Type: 
  Country: None (occurrence: None)
  Receive Date: 20040721
  Receipt Date: 20040708
  Transmission Date: 20050211
  Serious: Yes (Disabling, Other)
  Sender: FDA-Public Use
  Company Number: US-MERCK-0407USA00777

PATIENT
  Age: 68 Year
  Sex: Female
  Weight: 101 kg

DRUGS (2)
  1. VIOXX [Suspect]
     Route: 048
     Dates: start: 20040430
  2. VIOXX [Suspect]
     Route: 048
     Dates: end: 20040629

REACTIONS (4)
  - DYSPNOEA [None]
  - HYPERTENSION [None]
  - OEDEMA PERIPHERAL [None]
  - RENAL FAILURE [None]
